FAERS Safety Report 20940381 (Version 2)
Quarter: 2022Q2

REPORT INFORMATION
  Report Type: Spontaneous
  Country: UA (occurrence: UA)
  Receive Date: 20220609
  Receipt Date: 20220617
  Transmission Date: 20220721
  Serious: No
  Sender: FDA-Public Use
  Company Number: UA-NOVARTISPH-NVSC2022UA129860

PATIENT

DRUGS (8)
  1. OXALIPLATIN [Suspect]
     Active Substance: OXALIPLATIN
     Indication: Metastatic gastric cancer
     Dosage: 85 MG/M2, SLOWLY - 2 H, 1ST STAGE
     Route: 042
  2. OXALIPLATIN [Suspect]
     Active Substance: OXALIPLATIN
     Dosage: 85 MG/M2, SLOWLY - 2 H, 2ND STAGE
     Route: 042
  3. FLUOROURACIL [Concomitant]
     Active Substance: FLUOROURACIL
     Indication: Metastatic gastric cancer
     Dosage: 2600 MG/M2, SLOWLY - 24 H, 1ST STAGE
     Route: 042
  4. FLUOROURACIL [Concomitant]
     Active Substance: FLUOROURACIL
     Dosage: 2600 MG/M2, SLOWLY - 24 H, 2ND STAGE
     Route: 042
  5. DOCETAXEL [Concomitant]
     Active Substance: DOCETAXEL
     Indication: Metastatic gastric cancer
     Dosage: 50 MG/M2, DRIP WITH REPETITION EVERY TWO WEEKS, 1ST STAGE
     Route: 042
  6. DOCETAXEL [Concomitant]
     Active Substance: DOCETAXEL
     Dosage: 50 MG/M2, DRIP WITH REPETITION EVERY TWO WEEKS, 2ND STAGE
     Route: 042
  7. LEUCOVORIN [Concomitant]
     Active Substance: LEUCOVORIN
     Indication: Metastatic gastric cancer
     Dosage: 200 MG/M2, SLOWLY - 2 H, 1ST STAGE
     Route: 042
  8. LEUCOVORIN [Concomitant]
     Active Substance: LEUCOVORIN
     Dosage: 200 MG/M2, SLOWLY - 2 H, 2ND STAGE
     Route: 042

REACTIONS (1)
  - Off label use [Unknown]
